FAERS Safety Report 10953930 (Version 1)
Quarter: 2015Q1

REPORT INFORMATION
  Report Type: Spontaneous
  Country: US (occurrence: None)
  Receive Date: 20150226
  Receipt Date: 20150226
  Transmission Date: 20150721
  Serious: Yes (Disabling)
  Sender: FDA-Public Use
  Company Number: TAP2004Q00788

PATIENT
  Age: 26 Year
  Sex: Female
  Weight: 81.65 kg

DRUGS (3)
  1. ACCUTANE (ISOTRETINOIN) [Concomitant]
  2. PREVACID [Suspect]
     Active Substance: LANSOPRAZOLE
     Indication: ABDOMINAL PAIN UPPER
     Route: 048
     Dates: start: 199808, end: 20040408
  3. DEPO-PROVERA (MEDROXYPROGESTERONE ACETATE) [Concomitant]

REACTIONS (1)
  - Seizure [None]

NARRATIVE: CASE EVENT DATE: 200308
